FAERS Safety Report 25707727 (Version 1)
Quarter: 2025Q3

REPORT INFORMATION
  Report Type: Spontaneous
  Country: US (occurrence: US)
  Receive Date: 20250820
  Receipt Date: 20250820
  Transmission Date: 20251020
  Serious: Yes (Other)
  Sender: VERTEX
  Company Number: US-VERTEX PHARMACEUTICALS-2025-013418

PATIENT

DRUGS (1)
  1. CASGEVY [Suspect]
     Active Substance: EXAGAMGLOGENE AUTOTEMCEL
     Indication: Product used for unknown indication
     Route: 042
     Dates: start: 20250805

REACTIONS (1)
  - Infusion related reaction [Recovered/Resolved]

NARRATIVE: CASE EVENT DATE: 20250805
